FAERS Safety Report 16975275 (Version 1)
Quarter: 2019Q4

REPORT INFORMATION
  Report Type: Spontaneous
  Country: CA (occurrence: CA)
  Receive Date: 20191030
  Receipt Date: 20191030
  Transmission Date: 20200122
  Serious: Yes (Hospitalization, Other)
  Sender: FDA-Public Use
  Company Number: CA-PFIZER INC-2019467111

PATIENT
  Age: 10 Year
  Sex: Male
  Weight: 35 kg

DRUGS (8)
  1. PREDNISONE. [Concomitant]
     Active Substance: PREDNISONE
  2. VINCRISTINE [Concomitant]
     Active Substance: VINCRISTINE
  3. METHOTREXATE SODIUM. [Suspect]
     Active Substance: METHOTREXATE SODIUM
     Dosage: UNK
     Route: 042
  4. METHYLPREDNISOLONE. [Concomitant]
     Active Substance: METHYLPREDNISOLONE
  5. CYCLOPHOSPHAMIDE. [Concomitant]
     Active Substance: CYCLOPHOSPHAMIDE
  6. DOXORUBICIN HYDROCHLORIDE INJECTION [Concomitant]
     Active Substance: DOXORUBICIN HYDROCHLORIDE
  7. METHOTREXATE SODIUM. [Suspect]
     Active Substance: METHOTREXATE SODIUM
     Dosage: 3000 MG/M2, UNK
     Route: 042
  8. CYTARABINE. [Concomitant]
     Active Substance: CYTARABINE

REACTIONS (6)
  - Tongue ulceration [Recovering/Resolving]
  - Lip injury [Recovering/Resolving]
  - Mucosal inflammation [Recovering/Resolving]
  - Oral pain [Recovering/Resolving]
  - Lip dry [Recovering/Resolving]
  - Tongue erythema [Recovering/Resolving]
